FAERS Safety Report 8302002-1 (Version None)
Quarter: 2012Q2

REPORT INFORMATION
  Report Type: 
  Country: None (occurrence: None)
  Receive Date: 20120420
  Receipt Date: 20120417
  Transmission Date: 20120825
  Serious: Yes (Life-Threatening, Hospitalization, Other)
  Sender: FDA-Public Use
  Company Number: PHHO2011AU06834

PATIENT
  Sex: Male
  Weight: 65 kg

DRUGS (8)
  1. COLECALCIFEROL [Concomitant]
     Indication: VITAMIN SUPPLEMENTATION
     Dosage: 25 UG, QD
     Dates: start: 20091019
  2. PANTOPRAZOLE [Concomitant]
     Indication: PROPHYLAXIS
     Dosage: 40 MG, QD
     Dates: start: 20091007
  3. EVEROLIMUS [Suspect]
     Indication: LIVER TRANSPLANT
     Dosage: 1 MG, BID
     Route: 048
     Dates: start: 20091109, end: 20110415
  4. TACROLIMUS [Suspect]
     Indication: LIVER TRANSPLANT
     Dosage: 1MG AM, 0.5MG PM
     Route: 048
     Dates: start: 20091007, end: 20110415
  5. TEMAZEPAM [Concomitant]
     Indication: SLEEP DISORDER THERAPY
     Dosage: 10 MG, UNK
     Dates: start: 20091022
  6. FLUCONAZOLE [Suspect]
     Dosage: UNK
     Dates: start: 20110329
  7. CIPROFLOXACIN [Suspect]
     Dosage: UNK
     Dates: start: 20110329
  8. CALCIUM CARBONATE [Concomitant]
     Indication: MINERAL SUPPLEMENTATION
     Dosage: 1 TSP, QD
     Dates: start: 20091019

REACTIONS (5)
  - RENAL FAILURE [None]
  - LETHARGY [None]
  - ABSCESS [None]
  - TENDONITIS [None]
  - TREMOR [None]
